FAERS Safety Report 5291209-6 (Version None)
Quarter: 2007Q2

REPORT INFORMATION
  Report Type: 
  Country: None (occurrence: None)
  Receive Date: 20070409
  Receipt Date: 20070329
  Transmission Date: 20071010
  Serious: Yes (Life-Threatening, Hospitalization)
  Sender: FDA-Public Use
  Company Number: IT-SHR-IT-2007-007635

PATIENT
  Age: 61 Year
  Sex: Male

DRUGS (2)
  1. MAGNEVIST [Suspect]
     Dosage: 20 ML, 1 DOSE
     Route: 042
     Dates: start: 20070227, end: 20070227
  2. SODIUM CHLORIDE [Concomitant]
     Route: 040
     Dates: start: 20070227

REACTIONS (8)
  - AGITATION [None]
  - CEREBRAL INFARCTION [None]
  - COMA [None]
  - DYSPNOEA [None]
  - FEELING HOT [None]
  - RESPIRATORY ARREST [None]
  - RETCHING [None]
  - UNEVALUABLE EVENT [None]
